FAERS Safety Report 6817987-X (Version None)
Quarter: 2010Q3

REPORT INFORMATION
  Report Type: 
  Country: None (occurrence: None)
  Receive Date: 20100706
  Receipt Date: 20100623
  Transmission Date: 20110219
  Serious: Yes (Other)
  Sender: FDA-Public Use
  Company Number: GXKR2010IL05842

PATIENT
  Age: 70 Year
  Sex: Female

DRUGS (2)
  1. SALBUTAMOL (NGX) [Suspect]
     Indication: ASTHMA
     Dosage: 15 MG, UNK
     Route: 007
  2. IPRATROPIUM [Concomitant]

REACTIONS (3)
  - CHEST PAIN [None]
  - MYOCARDIAL INFARCTION [None]
  - SINUS TACHYCARDIA [None]
